FAERS Safety Report 18801848 (Version 1)
Quarter: 2021Q1

REPORT INFORMATION
  Report Type: Spontaneous
  Country: US (occurrence: US)
  Receive Date: 20210128
  Receipt Date: 20210128
  Transmission Date: 20210419
  Serious: No
  Sender: FDA-Public Use
  Company Number: US-BRISTOL-MYERS SQUIBB COMPANY-BMS-2021-006386

PATIENT
  Sex: Male
  Weight: 133.79 kg

DRUGS (1)
  1. ELIQUIS [Suspect]
     Active Substance: APIXABAN
     Indication: PULMONARY EMBOLISM
     Dosage: MG? TAKE 2 TABLETS BID FOR ^6 DAYS^ AND THEN 1 TABLET BID
     Route: 048
     Dates: start: 202012

REACTIONS (2)
  - Constipation [Unknown]
  - Intentional product use issue [Unknown]
